FAERS Safety Report 25285501 (Version 1)
Quarter: 2025Q2

REPORT INFORMATION
  Report Type: Spontaneous
  Country: PE (occurrence: PE)
  Receive Date: 20250509
  Receipt Date: 20250509
  Transmission Date: 20250717
  Serious: Yes (Hospitalization)
  Sender: NOVITIUM PHARMA
  Company Number: PE-NOVITIUMPHARMA-2025PENVP01083

PATIENT
  Age: 37 Year
  Sex: Female

DRUGS (10)
  1. PREDNISONE [Suspect]
     Active Substance: PREDNISONE
     Indication: Primary adrenal insufficiency
  2. PREDNISONE [Suspect]
     Active Substance: PREDNISONE
     Indication: Adrenal gland tuberculosis
  3. ISONIAZID [Concomitant]
     Active Substance: ISONIAZID
     Indication: Primary adrenal insufficiency
  4. ISONIAZID [Concomitant]
     Active Substance: ISONIAZID
  5. RIFAMPIN [Concomitant]
     Active Substance: RIFAMPIN
     Indication: Primary adrenal insufficiency
  6. RIFAMPIN [Concomitant]
     Active Substance: RIFAMPIN
  7. ETHAMBUTOL [Concomitant]
     Active Substance: ETHAMBUTOL HYDROCHLORIDE
     Indication: Primary adrenal insufficiency
  8. ETHAMBUTOL [Concomitant]
     Active Substance: ETHAMBUTOL HYDROCHLORIDE
  9. PYRAZINAMIDE [Concomitant]
     Active Substance: PYRAZINAMIDE
     Indication: Primary adrenal insufficiency
  10. PYRAZINAMIDE [Concomitant]
     Active Substance: PYRAZINAMIDE

REACTIONS (1)
  - Treatment noncompliance [Unknown]
